FAERS Safety Report 8563179-6 (Version None)
Quarter: 2012Q3

REPORT INFORMATION
  Report Type: 
  Country: None (occurrence: None)
  Receive Date: 20120802
  Receipt Date: 20120725
  Transmission Date: 20120928
  Serious: No
  Sender: FDA-Public Use
  Company Number: US-AMGEN-USASP2012046366

PATIENT
  Age: 66 Year
  Sex: Female

DRUGS (2)
  1. ENBREL [Suspect]
     Indication: PSORIATIC ARTHROPATHY
     Dosage: 50 MG, QWK
     Dates: start: 20110901
  2. METHOTREXATE [Concomitant]
     Dosage: UNK

REACTIONS (4)
  - HYPERKERATOSIS [None]
  - LOCALISED INFECTION [None]
  - BONE DISORDER [None]
  - ARTHRALGIA [None]
